FAERS Safety Report 7190457-8 (Version None)
Quarter: 2010Q4

REPORT INFORMATION
  Report Type: 
  Country: None (occurrence: None)
  Receive Date: 20101210
  Receipt Date: 20101203
  Transmission Date: 20110411
  Serious: Yes (Hospitalization)
  Sender: FDA-Public Use
  Company Number: 2010MA005005

PATIENT
  Age: 56 Year
  Sex: Female

DRUGS (4)
  1. DIAZEPAM [Suspect]
  2. SERTRALINE HYDROCHLORIDE [Suspect]
  3. SEROQUEL [Suspect]
     Indication: PSYCHOTIC DISORDER
     Dosage: 800 MG;QD;PO
     Route: 048
  4. LITHIUM CARBONATE [Suspect]

REACTIONS (1)
  - NEUROLEPTIC MALIGNANT SYNDROME [None]
